FAERS Safety Report 5198855-9 (Version None)
Quarter: 2007Q1

REPORT INFORMATION
  Report Type: 
  Country: None (occurrence: None)
  Receive Date: 20070104
  Receipt Date: 20070102
  Transmission Date: 20070707
  Serious: Yes (Death, Life-Threatening, Hospitalization)
  Sender: FDA-Public Use
  Company Number: UA-BRISTOL-MYERS SQUIBB COMPANY-13307830

PATIENT
  Age: 63 Year
  Sex: Male

DRUGS (3)
  1. CISPLATIN [Suspect]
     Indication: GASTRIC CANCER
     Route: 041
     Dates: start: 20060214, end: 20060214
  2. TS-1 [Suspect]
     Indication: GASTRIC CANCER
     Route: 048
     Dates: start: 20060214, end: 20060226
  3. FERROUS GLUCONATE [Concomitant]
     Indication: ANAEMIA
     Route: 048
     Dates: start: 20060213, end: 20060226

REACTIONS (1)
  - GASTRIC PERFORATION [None]
